FAERS Safety Report 9507051 (Version 1)
Quarter: 2013Q3

REPORT INFORMATION
  Report Type: Spontaneous
  Country: FR (occurrence: None)
  Receive Date: 20130904
  Receipt Date: 20130904
  Transmission Date: 20140515
  Serious: Yes (Hospitalization)
  Sender: FDA-Public Use
  Company Number: ACO_38167_2013

PATIENT
  Age: 62 Year
  Sex: Female

DRUGS (2)
  1. FAMPYRA (DALFAMPRIDINE) TABLET, 10MG [Suspect]
     Indication: GAIT DISTURBANCE
     Route: 048
     Dates: start: 20130614, end: 20130628
  2. CELLCEPT (MYCOPHENOLATE MOFETIL) TABLET [Concomitant]

REACTIONS (4)
  - Mobility decreased [None]
  - Fall [None]
  - Asthenia [None]
  - Paraparesis [None]
